FAERS Safety Report 9828677 (Version 1)
Quarter: 2014Q1

REPORT INFORMATION
  Report Type: Spontaneous
  Country: US (occurrence: US)
  Receive Date: 20140117
  Receipt Date: 20140117
  Transmission Date: 20141002
  Serious: Yes (Other)
  Sender: FDA-Public Use
  Company Number: US-ELI_LILLY_AND_COMPANY-US201401003408

PATIENT
  Sex: Female

DRUGS (3)
  1. HUMALOG LISPRO [Suspect]
     Indication: TYPE 2 DIABETES MELLITUS
     Dosage: UNK, TID
     Route: 065
  2. HUMALOG LISPRO [Suspect]
     Dosage: UNK, TID
     Route: 065
  3. LANTUS [Concomitant]
     Dosage: UNK, EACH EVENING

REACTIONS (8)
  - Spinal fracture [Unknown]
  - Visual impairment [Unknown]
  - Gait disturbance [Unknown]
  - Back pain [Unknown]
  - Intervertebral disc protrusion [Unknown]
  - Injection site scar [Unknown]
  - Intentional drug misuse [Not Recovered/Not Resolved]
  - Incorrect product storage [Unknown]
